APPROVED DRUG PRODUCT: VIRACEPT
Active Ingredient: NELFINAVIR MESYLATE
Strength: EQ 50MG BASE/SCOOPFUL
Dosage Form/Route: POWDER;ORAL
Application: N020778 | Product #001
Applicant: AGOURON PHARMACEUTICALS LLC
Approved: Mar 14, 1997 | RLD: No | RS: No | Type: DISCN